FAERS Safety Report 8823269 (Version 1)
Quarter: 2012Q4

REPORT INFORMATION
  Report Type: 
  Country: FR (occurrence: FR)
  Receive Date: 20121003
  Receipt Date: 20121003
  Transmission Date: 20130627
  Serious: Yes (Hospitalization)
  Sender: FDA-Public Use
  Company Number: FR-GLAXOSMITHKLINE-B0833649A

PATIENT
  Age: 64 Year
  Sex: Female

DRUGS (7)
  1. LAMICTAL [Suspect]
     Indication: BIPOLAR DISORDER
     Dosage: 50MG per day
     Route: 048
     Dates: start: 20120703
  2. DEPAKOTE [Suspect]
     Indication: BIPOLAR DISORDER
     Dosage: 500MG per day
     Route: 048
     Dates: start: 20090505, end: 20120717
  3. VENLAFAXINE [Suspect]
     Indication: BIPOLAR DISORDER
     Dosage: 150MG per day
     Route: 048
     Dates: start: 2007
  4. ALPRAZOLAM [Suspect]
     Indication: BIPOLAR DISORDER
     Dosage: .5MG per day
     Route: 048
     Dates: start: 20090319
  5. TERCIAN [Suspect]
     Indication: BIPOLAR DISORDER
     Dosage: 75MG per day
     Route: 048
  6. IMUREL [Suspect]
     Indication: CROHN^S DISEASE
     Route: 048
  7. FIVASA [Suspect]
     Indication: CROHN^S DISEASE
     Route: 048

REACTIONS (3)
  - Lymphopenia [Not Recovered/Not Resolved]
  - Leukopenia [Recovered/Resolved]
  - Incorrect dose administered [Unknown]
